FAERS Safety Report 8428540-9 (Version None)
Quarter: 2012Q2

REPORT INFORMATION
  Report Type: 
  Country: None (occurrence: None)
  Receive Date: 20120606
  Receipt Date: 20120606
  Transmission Date: 20120825
  Serious: Yes (Life-Threatening, Hospitalization, Other)
  Sender: FDA-Public Use
  Company Number: None

PATIENT
  Sex: Female
  Weight: 7.7 kg

DRUGS (3)
  1. CLOZAPINE [Suspect]
     Indication: AGGRESSION
     Dosage: 25 MG, BID, PO
     Route: 048
     Dates: start: 20120418, end: 20120501
  2. CLOZAPINE [Suspect]
     Indication: AGITATION
     Dosage: 25 MG, BID, PO
     Route: 048
     Dates: start: 20120418, end: 20120501
  3. CLOZAPINE [Suspect]
     Indication: ABNORMAL BEHAVIOUR
     Dosage: 25 MG, BID, PO
     Route: 048
     Dates: start: 20120418, end: 20120501

REACTIONS (21)
  - TEARFULNESS [None]
  - GAIT DISTURBANCE [None]
  - PULMONARY OEDEMA [None]
  - ESCHERICHIA URINARY TRACT INFECTION [None]
  - ACUTE RESPIRATORY DISTRESS SYNDROME [None]
  - SEPSIS [None]
  - BODY TEMPERATURE FLUCTUATION [None]
  - FIBRIN D DIMER INCREASED [None]
  - RESPIRATORY ALKALOSIS [None]
  - SEDATION [None]
  - RESTLESSNESS [None]
  - THROMBOCYTOPENIA [None]
  - VOMITING [None]
  - RENAL FAILURE ACUTE [None]
  - HYPOXIA [None]
  - NORMOCHROMIC NORMOCYTIC ANAEMIA [None]
  - RHABDOMYOLYSIS [None]
  - BANDAEMIA [None]
  - HYPOTENSION [None]
  - PNEUMONIA [None]
  - TROPONIN INCREASED [None]
